FAERS Safety Report 6061803-3 (Version None)
Quarter: 2009Q1

REPORT INFORMATION
  Report Type: 
  Country: None (occurrence: None)
  Receive Date: 20090202
  Receipt Date: 20090123
  Transmission Date: 20090719
  Serious: Yes (Hospitalization)
  Sender: FDA-Public Use
  Company Number: US-ELI_LILLY_AND_COMPANY-US200901004154

PATIENT
  Sex: Male

DRUGS (2)
  1. BYETTA [Suspect]
     Dosage: UNK, UNKNOWN
  2. HUMALOG [Concomitant]
     Dosage: UNK, UNKNOWN
     Dates: start: 20081001

REACTIONS (10)
  - ABASIA [None]
  - BLOOD GLUCOSE FLUCTUATION [None]
  - BLOOD GLUCOSE INCREASED [None]
  - DRUG INEFFECTIVE [None]
  - HOSPITALISATION [None]
  - INFECTION [None]
  - NERVOUS SYSTEM DISORDER [None]
  - RENAL DISORDER [None]
  - VIRAL INFECTION [None]
  - WEIGHT INCREASED [None]
